FAERS Safety Report 17354050 (Version 4)
Quarter: 2020Q3

REPORT INFORMATION
  Report Type: Report from Study
  Country: US (occurrence: US)
  Receive Date: 20200131
  Receipt Date: 20200714
  Transmission Date: 20201102
  Serious: Yes (Death, Hospitalization)
  Sender: FDA-Public Use
  Company Number: NVSC2020US024532

PATIENT
  Age: 72 Year
  Sex: Female
  Weight: 80.6 kg

DRUGS (3)
  1. CYCLOPHOSPHAMIDE. [Concomitant]
     Active Substance: CYCLOPHOSPHAMIDE
     Indication: CHEMOTHERAPY
     Dosage: (250 MG/M2 ? 1.88 M2)
     Route: 065
     Dates: start: 20191226, end: 20191228
  2. FLUDARABINE [Concomitant]
     Active Substance: FLUDARABINE PHOSPHATE
     Indication: CHEMOTHERAPY
     Dosage: (25 MG/M2 ? 1.88 M2)
     Route: 065
     Dates: start: 20191226, end: 20191229
  3. KYMRIAH [Suspect]
     Active Substance: TISAGENLECLEUCEL
     Indication: DIFFUSE LARGE B-CELL LYMPHOMA
     Dosage: (2.1 X 10^8 CAR+ VIABLE T?CELLS)
     Route: 042
     Dates: start: 20191231

REACTIONS (10)
  - Nausea [Unknown]
  - Vomiting [Recovered/Resolved with Sequelae]
  - Infection [Unknown]
  - Metastases to bone [Unknown]
  - Bone pain [Unknown]
  - Musculoskeletal chest pain [Unknown]
  - Urge incontinence [Unknown]
  - Malignant neoplasm progression [Fatal]
  - Pyrexia [Recovered/Resolved with Sequelae]
  - Diffuse large B-cell lymphoma [Fatal]

NARRATIVE: CASE EVENT DATE: 20200127
